FAERS Safety Report 16777806 (Version 1)
Quarter: 2019Q4

REPORT INFORMATION
  Report Type: Spontaneous
  Country: EG (occurrence: EG)
  Receive Date: 20190905
  Receipt Date: 20190905
  Transmission Date: 20200122
  Serious: Yes (Hospitalization)
  Sender: FDA-Public Use
  Company Number: None

PATIENT
  Age: 78 Year
  Sex: Male
  Weight: 81 kg

DRUGS (4)
  1. ASPIRIN. [Concomitant]
     Active Substance: ASPIRIN
  2. JANUMET [Suspect]
     Active Substance: METFORMIN HYDROCHLORIDE\SITAGLIPTIN PHOSPHATE
     Indication: TYPE 2 DIABETES MELLITUS
     Route: 048
  3. CARVEDILOL. [Concomitant]
     Active Substance: CARVEDILOL
  4. EXFORGE [Concomitant]
     Active Substance: AMLODIPINE BESYLATE\VALSARTAN

REACTIONS (4)
  - Pancreatic cyst [None]
  - Pancreatic carcinoma stage I [None]
  - Ductal adenocarcinoma of pancreas [None]
  - Weight decreased [None]

NARRATIVE: CASE EVENT DATE: 20190302
